FAERS Safety Report 8454210-7 (Version None)
Quarter: 2012Q2

REPORT INFORMATION
  Report Type: 
  Country: None (occurrence: None)
  Receive Date: 20120620
  Receipt Date: 20120615
  Transmission Date: 20120825
  Serious: Yes (Hospitalization, Other)
  Sender: FDA-Public Use
  Company Number: CO-ROCHE-GNE323873

PATIENT
  Age: 60 Year
  Sex: Female

DRUGS (1)
  1. LUCENTIS [Suspect]
     Indication: DIABETIC RETINAL OEDEMA
     Dosage: 0.5 MG, UNKNOWN
     Route: 050
     Dates: start: 20110609

REACTIONS (3)
  - DIABETIC NEUROPATHY [None]
  - SPINAL CORD COMPRESSION [None]
  - MUSCULAR WEAKNESS [None]
